FAERS Safety Report 6122359-X (Version None)
Quarter: 2009Q1

REPORT INFORMATION
  Report Type: 
  Country: None (occurrence: None)
  Receive Date: 20090318
  Receipt Date: 20090311
  Transmission Date: 20090719
  Serious: Yes (Other)
  Sender: FDA-Public Use
  Company Number: US-BAYER-200913435NA

PATIENT
  Age: 26 Year
  Sex: Female
  Weight: 73 kg

DRUGS (2)
  1. MIRENA [Suspect]
     Indication: CONTRACEPTION
     Route: 015
     Dates: start: 20090209, end: 20090209
  2. MIRENA [Suspect]
     Route: 015
     Dates: start: 20090209

REACTIONS (2)
  - COMPLICATION OF DEVICE INSERTION [None]
  - UTERINE RUPTURE [None]
